FAERS Safety Report 7803586-X (Version None)
Quarter: 2011Q4

REPORT INFORMATION
  Report Type: 
  Country: None (occurrence: None)
  Receive Date: 20111009
  Receipt Date: 20110926
  Transmission Date: 20120403
  Serious: Yes (Hospitalization, Other)
  Sender: FDA-Public Use
  Company Number: US-ELI_LILLY_AND_COMPANY-US201010004576

PATIENT
  Sex: Female

DRUGS (16)
  1. WELLBUTRIN [Concomitant]
  2. PLAQUENIL [Concomitant]
  3. AMORAM [Concomitant]
  4. FORTEO [Suspect]
     Indication: OSTEOARTHRITIS
     Dosage: 20 UG, DAILY (1/D)
     Dates: start: 20101008
  5. FORTEO [Suspect]
     Dosage: 20 UG, QD
  6. LISINOPRIL                         /00894001/ [Concomitant]
     Indication: BLOOD PRESSURE ABNORMAL
  7. TYLENOL PM [Concomitant]
     Indication: SLEEP DISORDER
  8. LASIX [Concomitant]
  9. TRAZODONE HYDROCHLORIDE [Concomitant]
  10. PERCOCET [Concomitant]
  11. EFFEXOR [Concomitant]
  12. PREDNISONE [Concomitant]
  13. SIMVASTATIN [Concomitant]
  14. PRILOSEC [Concomitant]
  15. COUMADIN [Concomitant]
  16. BISOPROLOL [Concomitant]

REACTIONS (6)
  - LOCALISED INFECTION [None]
  - ABDOMINAL DISCOMFORT [None]
  - EATING DISORDER [None]
  - OFF LABEL USE [None]
  - ARTHRODESIS [None]
  - DIARRHOEA [None]
